FAERS Safety Report 23442114 (Version 1)
Quarter: 2024Q1

REPORT INFORMATION
  Report Type: Spontaneous
  Country: IL (occurrence: IL)
  Receive Date: 20240125
  Receipt Date: 20240125
  Transmission Date: 20240410
  Serious: Yes (Hospitalization)
  Sender: FDA-Public Use
  Company Number: IL-ABBVIE-5601485

PATIENT
  Age: 53 Year
  Sex: Female

DRUGS (3)
  1. HUMIRA [Suspect]
     Active Substance: ADALIMUMAB
     Indication: Colitis ulcerative
     Route: 058
     Dates: start: 2015, end: 2020
  2. Rafassal [Concomitant]
     Indication: Colitis ulcerative
     Dates: start: 2015, end: 2020
  3. IMURAN [Concomitant]
     Active Substance: AZATHIOPRINE
     Indication: Colitis ulcerative
     Dates: start: 2015, end: 2020

REACTIONS (11)
  - Colitis [Unknown]
  - Inflammation [Unknown]
  - Colitis ulcerative [Recovered/Resolved]
  - Colitis ulcerative [Not Recovered/Not Resolved]
  - Hypoalbuminaemia [Unknown]
  - Pyrexia [Unknown]
  - Inflammation [Unknown]
  - Anaemia [Unknown]
  - Colitis ulcerative [Recovered/Resolved]
  - Drug level increased [Unknown]
  - Drug ineffective [Unknown]

NARRATIVE: CASE EVENT DATE: 20200101
